FAERS Safety Report 16328679 (Version 1)
Quarter: 2019Q2

REPORT INFORMATION
  Report Type: Spontaneous
  Country: US (occurrence: US)
  Receive Date: 20190518
  Receipt Date: 20190518
  Transmission Date: 20190711
  Serious: Yes (Other)
  Sender: FDA-Public Use
  Company Number: US-ROCHE-2321395

PATIENT
  Sex: Female
  Weight: 99.88 kg

DRUGS (1)
  1. XOLAIR [Suspect]
     Active Substance: OMALIZUMAB
     Indication: PRODUCT USED FOR UNKNOWN INDICATION
     Dosage: TREATMENT DISCONTINUED
     Route: 058
     Dates: start: 20190507, end: 20190507

REACTIONS (1)
  - Anaphylactic reaction [Recovered/Resolved]
